FAERS Safety Report 4282009-4 (Version None)
Quarter: 2004Q1

REPORT INFORMATION
  Report Type: 
  Country: None (occurrence: None)
  Receive Date: 20040128
  Receipt Date: 20040120
  Transmission Date: 20041129
  Serious: Yes (Other)
  Sender: FDA-Public Use
  Company Number: 12481404

PATIENT
  Sex: Female

DRUGS (1)
  1. CARBOPLATIN [Suspect]
     Indication: NEOPLASM MALIGNANT
     Dosage: .02 MILLILITER, 1/ ID
     Route: 023

REACTIONS (4)
  - CHEST DISCOMFORT [None]
  - CHILLS [None]
  - DERMATITIS EXFOLIATIVE [None]
  - DYSPNOEA [None]
